FAERS Safety Report 7590012-1 (Version None)
Quarter: 2011Q3

REPORT INFORMATION
  Report Type: 
  Country: None (occurrence: None)
  Receive Date: 20110705
  Receipt Date: 20110628
  Transmission Date: 20111222
  Serious: Yes (Death, Hospitalization)
  Sender: FDA-Public Use
  Company Number: A0933460A

PATIENT
  Age: 74 Year
  Sex: Female

DRUGS (5)
  1. PAIN MEDICATIONS [Concomitant]
  2. CONCURRENT MEDICATIONS [Concomitant]
  3. BLOOD PRESSURE MEDICATION [Concomitant]
  4. ARIXTRA [Suspect]
     Route: 058
     Dates: start: 20110325
  5. OXYCODONE HCL [Concomitant]

REACTIONS (1)
  - PANCREATIC CARCINOMA [None]
